FAERS Safety Report 21754236 (Version 1)
Quarter: 2022Q4

REPORT INFORMATION
  Report Type: Spontaneous
  Country: US (occurrence: None)
  Receive Date: 20221219
  Receipt Date: 20221219
  Transmission Date: 20230112
  Serious: Yes (Hospitalization)
  Sender: FDA-Public Use
  Company Number: None

PATIENT
  Age: 26 Year
  Sex: Female
  Weight: 53.98 kg

DRUGS (1)
  1. PEGCETACOPLAN [Suspect]
     Active Substance: PEGCETACOPLAN
     Indication: C3 glomerulopathy
     Dates: start: 20220919, end: 20221209

REACTIONS (4)
  - Headache [None]
  - Pain [None]
  - Flank pain [None]
  - Fatigue [None]

NARRATIVE: CASE EVENT DATE: 20221209
